FAERS Safety Report 19855629 (Version 1)
Quarter: 2021Q3

REPORT INFORMATION
  Report Type: Spontaneous
  Country: US (occurrence: US)
  Receive Date: 20210920
  Receipt Date: 20210920
  Transmission Date: 20211014
  Serious: Yes (Life-Threatening, Hospitalization)
  Sender: FDA-Public Use
  Company Number: None

PATIENT
  Age: 40 Year
  Sex: Male

DRUGS (2)
  1. DIVALPROEX SODIUM DR 250 [Concomitant]
  2. PHENOBARBITAL. [Suspect]
     Active Substance: PHENOBARBITAL
     Route: 048
     Dates: start: 20210731, end: 20210910

REACTIONS (2)
  - Toxicity to various agents [None]
  - Product quality issue [None]

NARRATIVE: CASE EVENT DATE: 20210911
